FAERS Safety Report 5041537-4 (Version None)
Quarter: 2006Q2

REPORT INFORMATION
  Report Type: 
  Country: None (occurrence: None)
  Receive Date: 20060627
  Receipt Date: 20060616
  Transmission Date: 20061013
  Serious: Yes (Death, Other)
  Sender: FDA-Public Use
  Company Number: 2005004215

PATIENT
  Age: 34 Year
  Sex: Female

DRUGS (2)
  1. NEURONTIN [Suspect]
     Indication: BIPOLAR DISORDER
     Dosage: 300 MG
  2. ZYPREXA [Suspect]
     Indication: ILL-DEFINED DISORDER

REACTIONS (7)
  - COMPLETED SUICIDE [None]
  - DRUG INEFFECTIVE [None]
  - DRUG TOXICITY [None]
  - INTENTIONAL OVERDOSE [None]
  - OVERDOSE [None]
  - SUICIDAL IDEATION [None]
  - SUICIDE ATTEMPT [None]
